FAERS Safety Report 10520562 (Version 1)
Quarter: 2014Q4

REPORT INFORMATION
  Report Type: Report from Study
  Country: UG (occurrence: UG)
  Receive Date: 20141015
  Receipt Date: 20141015
  Transmission Date: 20150528
  Serious: Yes (Other)
  Sender: FDA-Public Use
  Company Number: UG-GILEAD-2014-0117897

PATIENT
  Age: 24 Year
  Sex: Female

DRUGS (3)
  1. DMPA [Concomitant]
     Indication: CONTRACEPTION
     Route: 065
  2. ARTEMETHER W/LUMEFANTRINE [Concomitant]
     Indication: MALARIA
     Dosage: UNK
     Route: 065
     Dates: start: 201409
  3. EMTRICITABINE/TENOFOVIR DISOPROXIL FUMARATE [Suspect]
     Active Substance: EMTRICITABINE\TENOFOVIR DISOPROXIL
     Indication: PROPHYLAXIS AGAINST HIV INFECTION
     Dosage: UNK UNKNOWN, UNK
     Route: 065
     Dates: start: 20140115, end: 20140703

REACTIONS (1)
  - Foetal death [Recovered/Resolved]

NARRATIVE: CASE EVENT DATE: 20140909
